FAERS Safety Report 14102012 (Version 10)
Quarter: 2018Q2

REPORT INFORMATION
  Report Type: Spontaneous
  Country: NL (occurrence: NL)
  Receive Date: 20171018
  Receipt Date: 20180418
  Transmission Date: 20180711
  Serious: Yes (Life-Threatening, Hospitalization, Other)
  Sender: FDA-Public Use
  Company Number: NL-CONCORDIA PHARMACEUTICALS INC.-GSH201710-005863

PATIENT
  Age: 51 Year
  Sex: Female
  Weight: 64 kg

DRUGS (12)
  1. CELECOXIB. [Concomitant]
     Active Substance: CELECOXIB
     Dosage: 200 MG, BID
     Route: 048
  2. FLUOXETINE [Suspect]
     Active Substance: FLUOXETINE HYDROCHLORIDE
     Indication: DEPRESSION
     Dosage: 40 MG, DAILY
     Route: 048
     Dates: start: 20170923, end: 20170924
  3. NASACORT [Concomitant]
     Active Substance: TRIAMCINOLONE ACETONIDE
     Dosage: 1 DF, DAILY; NASAL SPRAY 55MCG/ DO 120 DO
     Route: 045
  4. PLAQUENIL [Suspect]
     Active Substance: HYDROXYCHLOROQUINE SULFATE
     Indication: RHEUMATOID ARTHRITIS
     Dosage: 200 MG, BID
     Route: 048
     Dates: start: 20161018, end: 20170924
  5. FLUOXETINE [Suspect]
     Active Substance: FLUOXETINE HYDROCHLORIDE
     Dosage: 1 DD
     Route: 048
     Dates: start: 20170907, end: 20170923
  6. FLUOXETINE [Suspect]
     Active Substance: FLUOXETINE HYDROCHLORIDE
     Dosage: VERHOGING VAN 1 X 1 TABL NAAR 1 X 2 TABL
     Route: 048
     Dates: start: 20170905, end: 20170924
  7. ZOPICLON [Concomitant]
     Active Substance: ZOPICLONE
     Dosage: 7.5 MG, PRN
     Route: 048
  8. FLUOXETINE [Suspect]
     Active Substance: FLUOXETINE HYDROCHLORIDE
     Dosage: 20 MG, DAILY, 1 DD
     Route: 048
     Dates: start: 20170907, end: 20170922
  9. OXAZEPAM. [Concomitant]
     Active Substance: OXAZEPAM
     Dosage: 10 MG, PRN
     Route: 048
  10. HYDROXYCHLOROQUINE [Concomitant]
     Active Substance: HYDROXYCHLOROQUINE
     Route: 065
  11. DESOGESTREL, ETHINYLESTRADIOL [Concomitant]
     Active Substance: DESOGESTREL
     Dosage: ETHINYLESTRADIOL/DESOGESTREL TABLET 30/150UG/ ETHINYLESTRADIOL / DESOGESTREL TABLET 30 / 150UG
     Route: 048
  12. ESOMEPRAZOL [Concomitant]
     Active Substance: ESOMEPRAZOLE
     Dosage: 40 MG, BID
     Route: 048

REACTIONS (5)
  - Confusional state [Recovering/Resolving]
  - Drug interaction [Unknown]
  - Vomiting [Recovering/Resolving]
  - Drug interaction [Recovering/Resolving]
  - Serotonin syndrome [Recovering/Resolving]

NARRATIVE: CASE EVENT DATE: 20170923
